FAERS Safety Report 9179484 (Version 1)
Quarter: 2012Q4

REPORT INFORMATION
  Report Type: 
  Country: BR (occurrence: BR)
  Receive Date: 20121029
  Receipt Date: 20121029
  Transmission Date: 20130627
  Serious: Yes (Death, Life-Threatening)
  Sender: FDA-Public Use
  Company Number: BR-ROCHE-1148316

PATIENT
  Sex: Female

DRUGS (5)
  1. RIVOTRIL [Suspect]
     Indication: PRODUCT USED FOR UNKNOWN INDICATION
     Route: 048
  2. RIVOTRIL [Suspect]
     Route: 048
  3. COLECALCIFEROL [Concomitant]
     Route: 065
  4. EUTHYROX [Concomitant]
     Route: 065
  5. GEODON [Concomitant]
     Indication: ASTHENIA

REACTIONS (5)
  - Coma [Fatal]
  - Suicide attempt [Unknown]
  - Cardiac arrest [Recovered/Resolved]
  - Brain hypoxia [Unknown]
  - Overdose [Unknown]
